FAERS Safety Report 4818980-9 (Version None)
Quarter: 2005Q4

REPORT INFORMATION
  Report Type: 
  Country: None (occurrence: None)
  Receive Date: 20051102
  Receipt Date: 20051102
  Transmission Date: 20060501
  Serious: Yes (Hospitalization)
  Sender: FDA-Public Use
  Company Number: None

PATIENT
  Sex: Male
  Weight: 92 kg

DRUGS (1)
  1. CLOPIDOGREL   75 MG [Suspect]
     Indication: THROMBOSIS PROPHYLAXIS
     Dosage: 75 MG   QD   PO
     Route: 048
     Dates: start: 20050628, end: 20050702

REACTIONS (2)
  - DRUG ERUPTION [None]
  - RASH PRURITIC [None]
